FAERS Safety Report 14952987 (Version 2)
Quarter: 2018Q3

REPORT INFORMATION
  Report Type: Spontaneous
  Country: DE (occurrence: DE)
  Receive Date: 20180530
  Receipt Date: 20180808
  Transmission Date: 20181010
  Serious: Yes (Hospitalization)
  Sender: FDA-Public Use
  Company Number: DE-ANIPHARMA-2018-DE-000100

PATIENT
  Age: 59 Year
  Sex: Male

DRUGS (8)
  1. HYDROCHLOROTHIAZIDE. [Suspect]
     Active Substance: HYDROCHLOROTHIAZIDE
     Dosage: 25 MG DAILY
     Route: 048
  2. ALLOPURINOL. [Concomitant]
     Active Substance: ALLOPURINOL
     Dosage: 300 MG DAILY
     Route: 048
  3. CANDESARTAN CILEXETIL. [Suspect]
     Active Substance: CANDESARTAN CILEXETIL
     Dosage: 4 MG DAILY
     Route: 048
  4. ACETYLSALICYLIC ACID [Concomitant]
     Active Substance: ASPIRIN
     Dosage: 100 MG DAILY
     Route: 048
  5. DENOSUMAB [Concomitant]
     Active Substance: DENOSUMAB
     Dosage: 150 MG
     Route: 042
  6. SIMVASTATIN. [Concomitant]
     Active Substance: SIMVASTATIN
     Dosage: 40 MG DAILY
     Route: 048
  7. CALCIUM CARBONATE+COLECALCIFEROL [Concomitant]
     Dosage: DAILY
     Route: 048
  8. METOPROLOL. [Suspect]
     Active Substance: METOPROLOL
     Dosage: 47.5 MG TWICE DAILY/UNKNOWN
     Route: 048

REACTIONS (2)
  - Dizziness [Unknown]
  - Syncope [Unknown]
